FAERS Safety Report 5004098-1 (Version None)
Quarter: 2006Q2

REPORT INFORMATION
  Report Type: 
  Country: None (occurrence: None)
  Receive Date: 20060511
  Receipt Date: 20060504
  Transmission Date: 20061013
  Serious: Yes (Other)
  Sender: FDA-Public Use
  Company Number: 2006060151

PATIENT
  Age: 47 Year
  Sex: Male
  Weight: 117.028 kg

DRUGS (2)
  1. LIPITOR [Suspect]
     Indication: BLOOD CHOLESTEROL INCREASED
     Dosage: 20MG (20 MG, 1 IN 1 D)
     Dates: start: 20060101, end: 20060101
  2. PREDNISONE TAB [Suspect]
     Indication: DYSPHAGIA
     Dates: start: 20060101

REACTIONS (3)
  - DYSPHAGIA [None]
  - PALATAL OEDEMA [None]
  - VIRAL INFECTION [None]
